FAERS Safety Report 5965199-4 (Version None)
Quarter: 2008Q4

REPORT INFORMATION
  Report Type: 
  Country: None (occurrence: None)
  Receive Date: 20081125
  Receipt Date: 20081120
  Transmission Date: 20090506
  Serious: Yes (Hospitalization, Other)
  Sender: FDA-Public Use
  Company Number: ES-ABBOTT-08P-144-0488913-00

PATIENT
  Age: 37 Year
  Sex: Female

DRUGS (2)
  1. HUMIRA [Suspect]
     Indication: PSORIATIC ARTHROPATHY
     Route: 058
     Dates: start: 20050201, end: 20081001
  2. PREDNISONE TAB [Concomitant]
     Indication: ARTHRITIS
     Dosage: 10 MG DAILY
     Route: 048
     Dates: start: 20080901

REACTIONS (5)
  - DEPRESSED LEVEL OF CONSCIOUSNESS [None]
  - ENCEPHALITIS [None]
  - PSYCHOMOTOR HYPERACTIVITY [None]
  - SINUSITIS [None]
  - TONSILLITIS [None]
